FAERS Safety Report 12137833 (Version 1)
Quarter: 2016Q1

REPORT INFORMATION
  Report Type: Spontaneous
  Country: US (occurrence: US)
  Receive Date: 20160302
  Receipt Date: 20160302
  Transmission Date: 20160526
  Serious: Yes (Hospitalization)
  Sender: FDA-Public Use
  Company Number: US-PFIZER INC-2016050543

PATIENT
  Age: 4 Year
  Sex: Male
  Weight: 16.33 kg

DRUGS (1)
  1. DILANTIN [Suspect]
     Active Substance: PHENYTOIN
     Dosage: UNK

REACTIONS (14)
  - Hyperglycaemia [Recovered/Resolved]
  - Somnolence [Recovered/Resolved]
  - Hyperreflexia [Recovered/Resolved]
  - Irritability [Recovered/Resolved]
  - Gait disturbance [Recovered/Resolved]
  - Accidental exposure to product by child [Unknown]
  - Accidental overdose [Unknown]
  - Aspartate aminotransferase increased [Recovered/Resolved]
  - Lethargy [Recovered/Resolved]
  - Motor dysfunction [Recovered/Resolved]
  - Cerebellar ataxia [Recovered/Resolved]
  - Alanine aminotransferase increased [Recovered/Resolved]
  - Nystagmus [Recovered/Resolved]
  - Hypoinsulinaemia [Recovered/Resolved]
